FAERS Safety Report 10673611 (Version 1)
Quarter: 2014Q4

REPORT INFORMATION
  Report Type: Spontaneous
  Country: US (occurrence: None)
  Receive Date: 20141222
  Receipt Date: 20141222
  Transmission Date: 20150529
  Serious: Yes (Other)
  Sender: FDA-Public Use
  Company Number: None

PATIENT
  Age: 37 Year
  Sex: Female
  Weight: 67.13 kg

DRUGS (1)
  1. MULTIHANCE [Suspect]
     Active Substance: GADOBENATE DIMEGLUMINE
     Indication: NUCLEAR MAGNETIC RESONANCE IMAGING
     Route: 042
     Dates: start: 20141210, end: 20141210

REACTIONS (5)
  - Flushing [None]
  - Contrast media reaction [None]
  - Nasal congestion [None]
  - Tachycardia [None]
  - Urticaria [None]

NARRATIVE: CASE EVENT DATE: 20141210
